FAERS Safety Report 7227874-3 (Version None)
Quarter: 2011Q1

REPORT INFORMATION
  Report Type: 
  Country: None (occurrence: None)
  Receive Date: 20110111
  Receipt Date: 20110111
  Transmission Date: 20110831
  Serious: Yes (Life-Threatening, Hospitalization)
  Sender: FDA-Public Use
  Company Number: None

PATIENT
  Age: 92 Year
  Sex: Female
  Weight: 65.7716 kg

DRUGS (1)
  1. SEROQUEL [Suspect]

REACTIONS (1)
  - CEREBRAL HAEMORRHAGE [None]
